FAERS Safety Report 8524845-1 (Version None)
Quarter: 2012Q3

REPORT INFORMATION
  Report Type: 
  Country: None (occurrence: None)
  Receive Date: 20120720
  Receipt Date: 20120712
  Transmission Date: 20120928
  Serious: Yes (Hospitalization, Other)
  Sender: FDA-Public Use
  Company Number: GB-ABBOTT-12P-167-0948206-00

PATIENT
  Sex: Male

DRUGS (24)
  1. HUMIRA [Suspect]
     Dates: start: 20120426
  2. PHENOXYMETHYLPENICILLIN [Concomitant]
     Indication: PRODUCT USED FOR UNKNOWN INDICATION
     Dates: start: 20110711
  3. FLUTICASONE PROPIONATE/SALMETEROL [Concomitant]
     Indication: PRODUCT USED FOR UNKNOWN INDICATION
  4. RANITIDINE [Concomitant]
     Indication: PRODUCT USED FOR UNKNOWN INDICATION
     Dates: start: 20110715
  5. FUSIDIC ACID 2% / BETAMETHASONE VALERATE 0.1% [Concomitant]
     Indication: PRODUCT USED FOR UNKNOWN INDICATION
     Dosage: APPLY TWICE DAILY
     Dates: start: 20111111
  6. SILDENAFIL [Concomitant]
     Indication: PRODUCT USED FOR UNKNOWN INDICATION
     Dosage: AS DIRECTED BY DOCTOR
     Dates: start: 20120608
  7. HUMIRA [Suspect]
     Dates: start: 20120303
  8. DOXYCLINE [Concomitant]
     Indication: PRODUCT USED FOR UNKNOWN INDICATION
  9. FLUTICASONE PROPIONATE/SALMETEROL [Concomitant]
     Indication: PRODUCT USED FOR UNKNOWN INDICATION
     Dates: start: 20120620
  10. CALAMINE [Concomitant]
     Indication: PRODUCT USED FOR UNKNOWN INDICATION
     Dosage: APPLY AS NEEDED
     Dates: start: 20110818
  11. FUSIDIC ACID [Concomitant]
     Indication: PRODUCT USED FOR UNKNOWN INDICATION
     Dates: start: 20110718
  12. CALCICHEW D3 FORTE [Concomitant]
     Indication: PRODUCT USED FOR UNKNOWN INDICATION
     Dates: start: 20111003
  13. VOLUMATIC [Concomitant]
     Indication: PRODUCT USED FOR UNKNOWN INDICATION
     Dosage: AS DIRECTED
     Dates: start: 20120328
  14. AMOXICILLIN [Concomitant]
     Indication: PRODUCT USED FOR UNKNOWN INDICATION
     Dates: start: 20120413
  15. AMOXICILLIN [Concomitant]
     Dates: start: 20111209
  16. HUMIRA [Suspect]
     Route: 058
  17. TRIMETHOPRIM [Concomitant]
     Indication: PRODUCT USED FOR UNKNOWN INDICATION
     Dates: start: 20110711
  18. UNIPHYL [Concomitant]
     Indication: PRODUCT USED FOR UNKNOWN INDICATION
     Dates: start: 20120202
  19. HUMIRA [Suspect]
     Indication: CROHN'S DISEASE
     Route: 058
     Dates: start: 20120501
  20. DOXYCYCLINE [Concomitant]
     Indication: PRODUCT USED FOR UNKNOWN INDICATION
     Dosage: AS DIRECTED BY HOSPITAL
     Dates: start: 20120416
  21. TRAMADOL HYDROCHLORIDE [Concomitant]
     Indication: PRODUCT USED FOR UNKNOWN INDICATION
     Dosage: 4 TIMES A DAY AS NEEDED
     Dates: start: 20111003
  22. VENTOLIN [Concomitant]
     Indication: PRODUCT USED FOR UNKNOWN INDICATION
     Dosage: 2 PUFFS AS DIRECTED,100MCG/DOSE EVOHALER
     Dates: start: 20120620
  23. CIPROFLOXACIN [Concomitant]
     Indication: PRODUCT USED FOR UNKNOWN INDICATION
     Dosage: APPLY AS DIRECTED
     Dates: start: 20110818
  24. FRESUBIN ENERGY LIQUID [Concomitant]
     Indication: PRODUCT USED FOR UNKNOWN INDICATION
     Dosage: 3 TIMES A DAY AS NEEDED
     Dates: start: 20120402

REACTIONS (51)
  - LOWER RESPIRATORY TRACT INFECTION [None]
  - OROPHARYNGEAL PAIN [None]
  - CHEST DISCOMFORT [None]
  - PANIC ATTACK [None]
  - TINNITUS [None]
  - DECREASED APPETITE [None]
  - PRESYNCOPE [None]
  - POOR QUALITY SLEEP [None]
  - SKIN ULCER [None]
  - WHEEZING [None]
  - UNEVALUABLE EVENT [None]
  - DEPRESSED MOOD [None]
  - ANXIETY [None]
  - DIZZINESS [None]
  - PHARYNGEAL DISORDER [None]
  - ANAPHYLACTIC REACTION [None]
  - DEPRESSION SUICIDAL [None]
  - RHINORRHOEA [None]
  - PRURITUS GENERALISED [None]
  - MIGRAINE [None]
  - PAIN [None]
  - SYNCOPE [None]
  - DRY EYE [None]
  - DIPLOPIA [None]
  - PARAESTHESIA ORAL [None]
  - COLITIS [None]
  - ASTHMA [None]
  - DYSPNOEA [None]
  - MUSCLE SPASMS [None]
  - VISION BLURRED [None]
  - INSOMNIA [None]
  - DYSURIA [None]
  - ANAPHYLACTIC SHOCK [None]
  - BLEPHARITIS [None]
  - ABDOMINAL TENDERNESS [None]
  - FOLLICULITIS [None]
  - HEADACHE [None]
  - OEDEMA PERIPHERAL [None]
  - SKIN EXFOLIATION [None]
  - CONJUNCTIVITIS [None]
  - DEPRESSION [None]
  - PANIC REACTION [None]
  - PROTEINURIA [None]
  - FATIGUE [None]
  - STRESS [None]
  - URTICARIA [None]
  - JOINT SWELLING [None]
  - COUGH [None]
  - PALPITATIONS [None]
  - ALOPECIA [None]
  - TEARFULNESS [None]
